FAERS Safety Report 13386461 (Version 1)
Quarter: 2017Q1

REPORT INFORMATION
  Report Type: Report from Study
  Country: FR (occurrence: FR)
  Receive Date: 20170330
  Receipt Date: 20170330
  Transmission Date: 20170429
  Serious: Yes (Hospitalization)
  Sender: FDA-Public Use
  Company Number: FR-ROCHE-1858497

PATIENT
  Age: 65 Year
  Sex: Male

DRUGS (2)
  1. RO 5509554 (CSF-1R MAB) [Suspect]
     Active Substance: EMACTUZUMAB
     Indication: NEOPLASM
     Dosage: MOST RECENT DOSE PRIOR OT THE EVENTS WAS ON 17/NOV/2016
     Route: 042
     Dates: start: 20161117
  2. ATEZOLIZUMAB [Suspect]
     Active Substance: ATEZOLIZUMAB
     Indication: NEOPLASM
     Dosage: MOST RECENT DOSE PRIOR TO THE EVENTS WAS ON 17/NOV/2016
     Route: 042
     Dates: start: 20161117

REACTIONS (2)
  - Pyrexia [Not Recovered/Not Resolved]
  - Cytokine release syndrome [Recovered/Resolved]

NARRATIVE: CASE EVENT DATE: 20161119
